FAERS Safety Report 19703097 (Version 1)
Quarter: 2021Q3

REPORT INFORMATION
  Report Type: Spontaneous
  Country: US (occurrence: US)
  Receive Date: 20210816
  Receipt Date: 20210816
  Transmission Date: 20211014
  Serious: Yes (Other)
  Sender: FDA-Public Use
  Company Number: US-SA-2021SA268011

PATIENT
  Age: 45 Year
  Sex: Male

DRUGS (3)
  1. ZANTAC [Suspect]
     Active Substance: RANITIDINE HYDROCHLORIDE
     Indication: DYSPEPSIA
     Dosage: 150 MG, QD
     Dates: start: 200402, end: 202001
  2. ZANTAC [Suspect]
     Active Substance: RANITIDINE HYDROCHLORIDE
     Indication: GASTRIC ULCER
  3. ZANTAC [Suspect]
     Active Substance: RANITIDINE HYDROCHLORIDE
     Indication: ABDOMINAL DISCOMFORT

REACTIONS (9)
  - Gastrointestinal carcinoma [Unknown]
  - Lung neoplasm malignant [Unknown]
  - Skin cancer [Unknown]
  - Disease progression [Not Recovered/Not Resolved]
  - Hepatic cancer stage II [Not Recovered/Not Resolved]
  - Thyroid cancer stage 0 [Unknown]
  - Renal cancer [Unknown]
  - Oesophageal carcinoma stage 0 [Unknown]
  - Gastric cancer [Unknown]

NARRATIVE: CASE EVENT DATE: 20051001
